FAERS Safety Report 7470890-7 (Version None)
Quarter: 2011Q2

REPORT INFORMATION
  Report Type: 
  Country: None (occurrence: None)
  Receive Date: 20110510
  Receipt Date: 20110427
  Transmission Date: 20111010
  Serious: Yes (Life-Threatening, Hospitalization)
  Sender: FDA-Public Use
  Company Number: BG-ELI_LILLY_AND_COMPANY-BG201010003370

PATIENT
  Sex: Male
  Weight: 97 kg

DRUGS (3)
  1. ZYPREXA [Suspect]
     Indication: SCHIZOPHRENIA, PARANOID TYPE
     Dosage: 10 MG, UNK
     Route: 048
     Dates: end: 20101007
  2. DIAZEPAM [Concomitant]
     Indication: SCHIZOPHRENIA
     Dosage: 5 MG/KG, BEFORE 12H
     Route: 048
     Dates: start: 20101007
  3. OLANZAPINE [Suspect]
     Indication: SCHIZOPHRENIA, PARANOID TYPE
     Dosage: 405 MG, MONTHLY (1/M)
     Route: 030
     Dates: start: 20101008

REACTIONS (20)
  - VISION BLURRED [None]
  - APHASIA [None]
  - DECREASED ACTIVITY [None]
  - COGNITIVE DISORDER [None]
  - ILLUSION [None]
  - DELUSION [None]
  - DYSARTHRIA [None]
  - HALLUCINATION [None]
  - DELIRIUM [None]
  - ALTERED STATE OF CONSCIOUSNESS [None]
  - APTYALISM [None]
  - SEDATION [None]
  - INCOHERENT [None]
  - DISORIENTATION [None]
  - PSYCHOMOTOR HYPERACTIVITY [None]
  - COORDINATION ABNORMAL [None]
  - SOMNOLENCE [None]
  - DIZZINESS [None]
  - ATAXIA [None]
  - CONFUSIONAL STATE [None]
